FAERS Safety Report 8249922-4 (Version None)
Quarter: 2012Q2

REPORT INFORMATION
  Report Type: 
  Country: None (occurrence: None)
  Receive Date: 20120402
  Receipt Date: 20120322
  Transmission Date: 20120825
  Serious: Yes (Other)
  Sender: FDA-Public Use
  Company Number: PHHY2012BR023644

PATIENT
  Sex: Male

DRUGS (1)
  1. GENTEAL [Suspect]
     Dosage: UNK UKN, UNK

REACTIONS (1)
  - NEUROLOGICAL EYELID DISORDER [None]
